FAERS Safety Report 16703056 (Version 1)
Quarter: 2019Q3

REPORT INFORMATION
  Report Type: Spontaneous
  Country: GB (occurrence: GB)
  Receive Date: 20190814
  Receipt Date: 20190814
  Transmission Date: 20191004
  Serious: Yes (Hospitalization)
  Sender: FDA-Public Use
  Company Number: GB-TEVA-2019-GB-1091888

PATIENT
  Age: 86 Year
  Sex: Male

DRUGS (8)
  1. WARFARIN [Suspect]
     Active Substance: WARFARIN
     Indication: ATRIAL FIBRILLATION
     Dosage: 6 MILLIGRAM
  2. LERCANIDIPINE [Concomitant]
     Active Substance: LERCANIDIPINE
     Dosage: 20 MILLIGRAM
  3. LOSARTAN. [Concomitant]
     Active Substance: LOSARTAN
     Dosage: 100 MILLIGRAM
  4. OMEPRAZOLE. [Concomitant]
     Active Substance: OMEPRAZOLE
     Dosage: 20 MILLIGRAM
  5. BENDROFLUMETHIAZIDE [Concomitant]
     Active Substance: BENDROFLUMETHIAZIDE
     Dosage: EVERY MORNING. 2.5 MILLIGRAM
  6. PREDNISOLONE. [Concomitant]
     Active Substance: PREDNISOLONE
     Dosage: 2 MILLIGRAM
  7. CALCICHEW D3 [Concomitant]
     Active Substance: CALCIUM\CHOLECALCIFEROL
     Dosage: 1 DOSAGE FORMS
  8. ALENDRONIC ACID [Concomitant]
     Active Substance: ALENDRONIC ACID
     Dosage: 70 MILLIGRAM

REACTIONS (1)
  - Subdural haematoma [Recovered/Resolved]
